FAERS Safety Report 9338925 (Version 1)
Quarter: 2013Q2

REPORT INFORMATION
  Report Type: Spontaneous
  Country: US (occurrence: US)
  Receive Date: 20130610
  Receipt Date: 20130610
  Transmission Date: 20140414
  Serious: Yes (Disabling)
  Sender: FDA-Public Use
  Company Number: US-PFIZER INC-2013173467

PATIENT
  Age: 61 Year
  Sex: Female
  Weight: 71.66 kg

DRUGS (5)
  1. CYMBALTA [Concomitant]
     Indication: DEPRESSION
     Dosage: UNK
  2. HYDROCODONE [Concomitant]
     Dosage: AS NEEDED
  3. XANAX [Concomitant]
     Indication: DEPRESSION
     Dosage: AS NEEDED
  4. XANAX [Concomitant]
     Indication: PANIC ATTACK
  5. CELEBREX [Suspect]
     Indication: ARTHRITIS
     Dosage: UNK

REACTIONS (3)
  - Fibromyalgia [Unknown]
  - Arthritis [Unknown]
  - Abdominal discomfort [Unknown]
